FAERS Safety Report 14724010 (Version 11)
Quarter: 2021Q2

REPORT INFORMATION
  Report Type: Spontaneous
  Country: US (occurrence: US)
  Receive Date: 20180405
  Receipt Date: 20210616
  Transmission Date: 20210716
  Serious: Yes (Hospitalization)
  Sender: FDA-Public Use
  Company Number: US-VIFOR (INTERNATIONAL) INC.-VIT-2018-02843

PATIENT
  Age: 42 Year
  Sex: Male
  Weight: 155 kg

DRUGS (35)
  1. AURYXIA [Concomitant]
     Active Substance: TETRAFERRIC TRICITRATE DECAHYDRATE
  2. DUODERM HYDROACTIVE [Concomitant]
     Active Substance: CARBOXYMETHYLCELLULOSE SODIUM\PECTIN
  3. FENOFIBRATE. [Concomitant]
     Active Substance: FENOFIBRATE
  4. LORAZEPAM. [Concomitant]
     Active Substance: LORAZEPAM
  5. ASPIRIN. [Concomitant]
     Active Substance: ASPIRIN
  6. CLOBETASOL PROPIONATE. [Concomitant]
     Active Substance: CLOBETASOL PROPIONATE
  7. VELTASSA [Suspect]
     Active Substance: PATIROMER
     Route: 048
  8. VELTASSA [Suspect]
     Active Substance: PATIROMER
     Route: 048
     Dates: start: 20170801
  9. ACETAMINOPHEN. [Concomitant]
     Active Substance: ACETAMINOPHEN
  10. AMITRIPTYLINE HCL [Concomitant]
     Active Substance: AMITRIPTYLINE
  11. ANUSOL?HC [Concomitant]
     Active Substance: HYDROCORTISONE
  12. BETAMETHASONE VALERATE. [Concomitant]
     Active Substance: BETAMETHASONE VALERATE
  13. DIPHENHYDRAMINE HCL [Concomitant]
     Active Substance: DIPHENHYDRAMINE HYDROCHLORIDE
  14. DOCUSATE SODIUM. [Concomitant]
     Active Substance: DOCUSATE SODIUM
  15. MIDODRINE HCL [Concomitant]
     Active Substance: MIDODRINE HYDROCHLORIDE
  16. AQUANIL HC [Concomitant]
     Active Substance: HYDROCORTISONE
  17. CLOPIDOGREL BISULFATE. [Concomitant]
     Active Substance: CLOPIDOGREL BISULFATE
  18. GAVILAX [Concomitant]
     Active Substance: POLYETHYLENE GLYCOL 3350
  19. KETOCONAZOLE. [Concomitant]
     Active Substance: KETOCONAZOLE
  20. PREPARATION H NOS [Concomitant]
     Active Substance: COCOA BUTTER\PETROLATUM\PHENYLEPHRINE HYDROCHLORIDE\PHENYLEPHRINE HYDROCHLORIDE OR MINERAL OIL
  21. CALCIUM ACETATE. [Concomitant]
     Active Substance: CALCIUM ACETATE
  22. SENNA [Concomitant]
     Active Substance: SENNA LEAF\SENNOSIDES\SENNOSIDES A AND B
  23. KIONEX [Concomitant]
     Active Substance: SODIUM POLYSTYRENE SULFONATE
  24. OXYCODONE HYDROCHLORIDE. [Concomitant]
     Active Substance: OXYCODONE HYDROCHLORIDE
  25. HYDROXYZINE HCL [Concomitant]
     Active Substance: HYDROXYZINE HYDROCHLORIDE
  26. METHADONE HCL [Concomitant]
     Active Substance: METHADONE HYDROCHLORIDE
  27. MILK OF MAGNESIA [Concomitant]
     Active Substance: MAGNESIUM HYDROXIDE
  28. PANTOPRAZOLE SODIUM. [Concomitant]
     Active Substance: PANTOPRAZOLE SODIUM
  29. VASCEPA [Concomitant]
     Active Substance: ICOSAPENT ETHYL
  30. VITAMIN D2 [Concomitant]
     Active Substance: ERGOCALCIFEROL
  31. VELTASSA [Suspect]
     Active Substance: PATIROMER
     Indication: HYPERKALAEMIA
     Route: 048
     Dates: start: 20170802
  32. COLLAGENASE SANTYL [Concomitant]
     Active Substance: COLLAGENASE CLOSTRIDIUM HISTOLYTICUM
  33. SENSIPAR [Concomitant]
     Active Substance: CINACALCET HYDROCHLORIDE
  34. SILVER SULFADIAZINE. [Concomitant]
     Active Substance: SILVER SULFADIAZINE
  35. VENLAFAXINE HCL [Concomitant]
     Active Substance: VENLAFAXINE HYDROCHLORIDE

REACTIONS (11)
  - No adverse event [Unknown]
  - Illness [Not Recovered/Not Resolved]
  - Nausea [Not Recovered/Not Resolved]
  - Vomiting [Unknown]
  - Tremor [Unknown]
  - Muscle spasms [Unknown]
  - Treatment noncompliance [Not Recovered/Not Resolved]
  - Hospitalisation [Unknown]
  - Malaise [Not Recovered/Not Resolved]
  - Blood potassium increased [Recovered/Resolved]
  - Dysstasia [Unknown]

NARRATIVE: CASE EVENT DATE: 20180227
